FAERS Safety Report 15261540 (Version 1)
Quarter: 2018Q3

REPORT INFORMATION
  Report Type: Spontaneous
  Country: US (occurrence: US)
  Receive Date: 20180719
  Receipt Date: 20180719
  Transmission Date: 20181010
  Serious: No
  Sender: FDA-Public Use
  Company Number: None

PATIENT

DRUGS (2)
  1. OXYBUTYNIN XL [Suspect]
     Active Substance: OXYBUTYNIN CHLORIDE
  2. VESICARE [Suspect]
     Active Substance: SOLIFENACIN SUCCINATE

REACTIONS (2)
  - Dry mouth [None]
  - Drug ineffective [None]
